FAERS Safety Report 9124511 (Version 1)
Quarter: 2013Q1

REPORT INFORMATION
  Report Type: Spontaneous
  Country: GB (occurrence: GB)
  Receive Date: 20130116
  Receipt Date: 20130116
  Transmission Date: 20140127
  Serious: Yes (Hospitalization, Other)
  Sender: FDA-Public Use
  Company Number: PHFR2012GB005723

PATIENT
  Age: 43 Year
  Sex: Female
  Weight: 75 kg

DRUGS (1)
  1. CLOZARIL [Suspect]
     Indication: SCHIZOPHRENIA
     Dosage: 300 MG, (250MG NOCTE+ 50 MG MANE)
     Route: 048
     Dates: start: 20120823, end: 20121101

REACTIONS (5)
  - Neutrophilia [Recovered/Resolved]
  - Constipation [Recovered/Resolved]
  - Neutrophil count decreased [Recovered/Resolved]
  - Leukopenia [Recovered/Resolved]
  - White blood cell count decreased [Recovered/Resolved]
